FAERS Safety Report 25203091 (Version 1)
Quarter: 2025Q2

REPORT INFORMATION
  Report Type: Spontaneous
  Country: US (occurrence: None)
  Receive Date: 20250416
  Receipt Date: 20250416
  Transmission Date: 20250716
  Serious: Yes (Hospitalization)
  Sender: FDA-CTU
  Company Number: None

PATIENT
  Age: 50 Year
  Sex: Female

DRUGS (4)
  1. OPSUMIT [Suspect]
     Active Substance: MACITENTAN
     Indication: Pulmonary arterial hypertension
     Dosage: FREQUENCY : DAILY;?
     Route: 048
     Dates: start: 20231005
  2. SILDENAFIL [Concomitant]
     Active Substance: SILDENAFIL
  3. DIGOXIN [Concomitant]
     Active Substance: DIGOXIN
  4. UPTRAVI [Suspect]
     Active Substance: SELEXIPAG

REACTIONS (3)
  - Cardiac failure congestive [None]
  - Intentional dose omission [None]
  - Product use issue [None]

NARRATIVE: CASE EVENT DATE: 20250409
